FAERS Safety Report 4984262-8 (Version None)
Quarter: 2006Q2

REPORT INFORMATION
  Report Type: 
  Country: None (occurrence: None)
  Receive Date: 20060420
  Receipt Date: 20060410
  Transmission Date: 20061013
  Serious: Yes (Death)
  Sender: FDA-Public Use
  Company Number: 223945

PATIENT
  Age: 89 Year
  Sex: Male

DRUGS (5)
  1. RITUXAN [Suspect]
     Indication: LYMPHOMA
     Dosage: 600 MG, INTRAVENOUS
     Route: 042
     Dates: start: 20041027, end: 20041213
  2. DECADRON [Suspect]
     Indication: LYMPHOMA
     Dosage: 40 MG, INTRAVENOUS
     Route: 042
     Dates: start: 20041028, end: 20041214
  3. ONCOVIN [Suspect]
     Indication: LYMPHOMA
     Dosage: 1 MG, INTRAVENOUS
     Route: 042
     Dates: start: 20041028, end: 20041214
  4. CYCLOPHOSPHAMIDE [Suspect]
     Indication: LYMPHOMA
     Dosage: 1000 MG, INTRAVENOUS
     Route: 042
     Dates: start: 20041028, end: 20041214
  5. DECADRON [Concomitant]

REACTIONS (1)
  - PNEUMOCYSTIS JIROVECI PNEUMONIA [None]
